FAERS Safety Report 7640635-6 (Version None)
Quarter: 2011Q3

REPORT INFORMATION
  Report Type: 
  Country: None (occurrence: None)
  Receive Date: 20110721
  Receipt Date: 20110707
  Transmission Date: 20111222
  Serious: Yes (Hospitalization)
  Sender: FDA-Public Use
  Company Number: US-1186992

PATIENT
  Age: 81 Year
  Sex: Female

DRUGS (1)
  1. BSS INTRAOCULAR SOLUTION [Suspect]
     Dosage: INTRAOCULAR
     Route: 031

REACTIONS (1)
  - ENDOPHTHALMITIS [None]
